FAERS Safety Report 6438534-0 (Version None)
Quarter: 2009Q4

REPORT INFORMATION
  Report Type: 
  Country: None (occurrence: None)
  Receive Date: 20091110
  Receipt Date: 20091026
  Transmission Date: 20100525
  Serious: Yes (Hospitalization)
  Sender: FDA-Public Use
  Company Number: 002152

PATIENT
  Sex: Female

DRUGS (5)
  1. VIMPAT [Suspect]
     Indication: EPILEPSY
     Dosage: (900 MG TID ORAL), (300 MG BID ORAL)
     Route: 048
     Dates: start: 20090915, end: 20091007
  2. VIMPAT [Suspect]
     Indication: EPILEPSY
     Dosage: (900 MG TID ORAL), (300 MG BID ORAL)
     Route: 048
     Dates: start: 20091008, end: 20091021
  3. PREGABALIN [Concomitant]
  4. LICARBAZEPINE [Concomitant]
  5. CLOBAZAM [Concomitant]

REACTIONS (5)
  - CONVULSION [None]
  - DIZZINESS [None]
  - FATIGUE [None]
  - GRAND MAL CONVULSION [None]
  - HAEMATOMA [None]
